FAERS Safety Report 7729638-0 (Version None)
Quarter: 2011Q3

REPORT INFORMATION
  Report Type: 
  Country: None (occurrence: None)
  Receive Date: 20110906
  Receipt Date: 20110830
  Transmission Date: 20111222
  Serious: Yes (Hospitalization)
  Sender: FDA-Public Use
  Company Number: FR-SANOFI-AVENTIS-2011SA055496

PATIENT
  Age: 53 Year
  Sex: Male

DRUGS (10)
  1. DEPAKENE [Suspect]
     Indication: EPILEPSY
     Route: 048
     Dates: start: 20110716
  2. PREDNISONE [Suspect]
     Dates: start: 20110501
  3. CALCIUM CARBONATE [Suspect]
  4. EUPRESSYL [Suspect]
     Route: 048
     Dates: start: 20110529
  5. CALCIPARINE [Suspect]
     Dates: start: 20110708, end: 20110808
  6. CITALOPRAM [Suspect]
     Route: 048
  7. RENAGEL [Suspect]
     Route: 048
  8. KAYEXALATE [Suspect]
     Route: 048
     Dates: start: 20110603
  9. ARANESP [Suspect]
  10. KEPPRA [Concomitant]

REACTIONS (3)
  - ANAEMIA [None]
  - THROMBOCYTOPENIA [None]
  - RENAL FAILURE [None]
